FAERS Safety Report 7488402-0 (Version None)
Quarter: 2011Q2

REPORT INFORMATION
  Report Type: 
  Country: None (occurrence: None)
  Receive Date: 20110518
  Receipt Date: 20110517
  Transmission Date: 20111010
  Serious: Yes (Hospitalization)
  Sender: FDA-Public Use
  Company Number: US-PFIZER INC-2011089027

PATIENT
  Sex: Male
  Weight: 100.3 kg

DRUGS (11)
  1. SUNITINIB MALATE [Suspect]
     Indication: METASTATIC RENAL CELL CARCINOMA
     Dosage: 37.5 MG, 14 DAYS ON, 1 WEEK OFF
     Route: 048
     Dates: start: 20100611, end: 20110414
  2. ATENOLOL [Concomitant]
  3. ASPIRIN [Concomitant]
  4. NORVASC [Concomitant]
  5. MORPHINE [Concomitant]
  6. KAYEXALATE [Concomitant]
  7. ENALAPRIL MALEATE [Concomitant]
  8. PRILOSEC [Concomitant]
  9. XANAX [Concomitant]
  10. AMBIEN [Concomitant]
  11. GEMCITABINE [Suspect]
     Indication: METASTATIC RENAL CELL CARCINOMA
     Dosage: 600 MG/M2, EVERY 2 WEEKS, 1 WEEK OFF
     Route: 042
     Dates: start: 20100611, end: 20110408

REACTIONS (5)
  - RENAL FAILURE ACUTE [None]
  - ANAEMIA [None]
  - DYSPNOEA [None]
  - OEDEMA PERIPHERAL [None]
  - HYPOXIA [None]
